FAERS Safety Report 15103812 (Version 4)
Quarter: 2018Q3

REPORT INFORMATION
  Report Type: Spontaneous
  Country: FR (occurrence: FR)
  Receive Date: 20180703
  Receipt Date: 20180913
  Transmission Date: 20181010
  Serious: Yes (Other)
  Sender: FDA-Public Use
  Company Number: FR-PFIZER INC-2018265864

PATIENT
  Age: 62 Year
  Sex: Male

DRUGS (2)
  1. METHOTREXATE SODIUM. [Suspect]
     Active Substance: METHOTREXATE SODIUM
     Indication: PSORIASIS
     Dosage: FOR 4 MONTHS PRIOR TO USTEKINUMAB
     Route: 065
  2. USTEKINUMAB [Suspect]
     Active Substance: USTEKINUMAB
     Indication: PSORIASIS
     Dosage: FIRST INJECTION AT WEEKS 0 AND 4, THIRD INJECTION AT WEEK 16, FOURTH INJECTION (45MG) AT WEEK 28
     Route: 058

REACTIONS (2)
  - Cutaneous leishmaniasis [Recovering/Resolving]
  - Treatment failure [Unknown]
